FAERS Safety Report 11744939 (Version 4)
Quarter: 2016Q1

REPORT INFORMATION
  Report Type: Spontaneous
  Country: FR (occurrence: FR)
  Receive Date: 20151117
  Receipt Date: 20160229
  Transmission Date: 20160525
  Serious: Yes (Hospitalization)
  Sender: FDA-Public Use
  Company Number: FR-ROCHE-1660895

PATIENT
  Age: 17 Year
  Sex: Male

DRUGS (7)
  1. SEREVENT DISKUS [Concomitant]
     Active Substance: SALMETEROL XINAFOATE
  2. DILANTIN [Concomitant]
     Active Substance: PHENYTOIN
  3. XOLAIR [Suspect]
     Active Substance: OMALIZUMAB
     Indication: ASTHMA
     Route: 058
     Dates: start: 20151029, end: 20151029
  4. SERETIDE [Concomitant]
     Active Substance: FLUTICASONE FUROATE\SALMETEROL XINAFOATE
  5. VENTOLINE [Concomitant]
     Active Substance: ALBUTEROL
  6. AERIUS [Concomitant]
     Active Substance: DESLORATADINE
  7. PULMICORT TURBUHALER [Concomitant]
     Active Substance: BUDESONIDE

REACTIONS (5)
  - Dyskinesia [Recovered/Resolved]
  - Loss of consciousness [Recovered/Resolved]
  - Hypertonia [Recovered/Resolved]
  - Headache [Recovered/Resolved]
  - Seizure [Recovered/Resolved]

NARRATIVE: CASE EVENT DATE: 20151029
